FAERS Safety Report 15981841 (Version 1)
Quarter: 2019Q1

REPORT INFORMATION
  Report Type: Spontaneous
  Country: FR (occurrence: FR)
  Receive Date: 20190219
  Receipt Date: 20190219
  Transmission Date: 20190418
  Serious: Yes (Hospitalization, Other)
  Sender: FDA-Public Use
  Company Number: FR-MYLANLABS-2019M1015481

PATIENT
  Age: 91 Year
  Sex: Female
  Weight: 40 kg

DRUGS (1)
  1. FONDAPARINUX [Suspect]
     Active Substance: FONDAPARINUX
     Indication: THROMBOSIS PROPHYLAXIS
     Dosage: 7.5 MILLIGRAM, QD
     Route: 058
     Dates: start: 20181129, end: 20181213

REACTIONS (3)
  - Spontaneous haematoma [Recovered/Resolved]
  - Incorrect dosage administered [Unknown]
  - Anaemia [Recovering/Resolving]

NARRATIVE: CASE EVENT DATE: 20181213
